FAERS Safety Report 8240592-8 (Version None)
Quarter: 2012Q1

REPORT INFORMATION
  Report Type: 
  Country: None (occurrence: None)
  Receive Date: 20120328
  Receipt Date: 20120314
  Transmission Date: 20120608
  Serious: No
  Sender: FDA-Public Use
  Company Number: US-BAYER-2012-022864

PATIENT
  Age: 39 Year
  Sex: Female

DRUGS (2)
  1. MIRENA [Suspect]
     Indication: MENORRHAGIA
     Dosage: 20 MCG/24HR, CONT
     Dates: start: 20111206, end: 20120227
  2. MIRENA [Suspect]
     Indication: CONTRACEPTION

REACTIONS (2)
  - MENORRHAGIA [None]
  - DEVICE EXPULSION [None]
